FAERS Safety Report 19138683 (Version 1)
Quarter: 2021Q2

REPORT INFORMATION
  Report Type: Report from Study
  Country: PA (occurrence: PA)
  Receive Date: 20210415
  Receipt Date: 20210415
  Transmission Date: 20210717
  Serious: Yes (Other)
  Sender: FDA-Public Use
  Company Number: NVSC2020PA153169

PATIENT
  Age: 80 Year
  Sex: Female

DRUGS (2)
  1. VYMADA [Suspect]
     Active Substance: SACUBITRIL\VALSARTAN
     Indication: CARDIAC DISORDER
     Dosage: 50 MG
     Route: 065
     Dates: start: 2020, end: 202101
  2. VYMADA [Suspect]
     Active Substance: SACUBITRIL\VALSARTAN
     Indication: EJECTION FRACTION DECREASED
     Dosage: 100 MG
     Route: 065
     Dates: start: 202101

REACTIONS (3)
  - Wrong technique in product usage process [Unknown]
  - Product use in unapproved indication [Unknown]
  - Cardiac failure [Unknown]
